FAERS Safety Report 25579030 (Version 1)
Quarter: 2025Q3

REPORT INFORMATION
  Report Type: Spontaneous
  Country: US (occurrence: US)
  Receive Date: 20250718
  Receipt Date: 20250718
  Transmission Date: 20251021
  Serious: Yes (Other)
  Sender: PFIZER
  Company Number: US-PFIZER INC-202500144949

PATIENT

DRUGS (1)
  1. ZAVZPRET [Suspect]
     Active Substance: ZAVEGEPANT HYDROCHLORIDE
     Indication: Migraine

REACTIONS (5)
  - Burn oral cavity [Unknown]
  - Swollen tongue [Unknown]
  - Tongue discolouration [Unknown]
  - Malaise [Unknown]
  - Throat irritation [Unknown]
